FAERS Safety Report 16095937 (Version 1)
Quarter: 2019Q1

REPORT INFORMATION
  Report Type: Spontaneous
  Country: US (occurrence: US)
  Receive Date: 20190320
  Receipt Date: 20190320
  Transmission Date: 20190418
  Serious: Yes (Hospitalization)
  Sender: FDA-Public Use
  Company Number: US-SA-2019SA072318

PATIENT
  Age: 65 Year
  Sex: Female
  Weight: 68.04 kg

DRUGS (2)
  1. TAXOTERE [Suspect]
     Active Substance: DOCETAXEL
     Indication: BREAST CANCER STAGE IV
     Dosage: UNK
     Dates: start: 20190104
  2. CAPECITABINE. [Suspect]
     Active Substance: CAPECITABINE
     Indication: BREAST CANCER STAGE IV
     Dosage: 500 MG CAPSULE, 4 CAPSULES TWICE PER DAY IN MORNING AND NIGHT
     Route: 048
     Dates: start: 20190104

REACTIONS (7)
  - Pain [Recovered/Resolved]
  - Therapy cessation [Unknown]
  - Skin exfoliation [Recovering/Resolving]
  - Musculoskeletal stiffness [Recovered/Resolved]
  - Erythema [Recovered/Resolved]
  - White blood cell count decreased [Recovered/Resolved]
  - Skin burning sensation [Recovered/Resolved]

NARRATIVE: CASE EVENT DATE: 20190128
